FAERS Safety Report 11582190 (Version 1)
Quarter: 2015Q4

REPORT INFORMATION
  Report Type: Spontaneous
  Country: US (occurrence: US)
  Receive Date: 20151001
  Receipt Date: 20151001
  Transmission Date: 20160304
  Serious: No
  Sender: FDA-Public Use
  Company Number: US-ROCHE-679541

PATIENT
  Age: 50 Year
  Sex: Male

DRUGS (7)
  1. PHENERGAN [Concomitant]
     Active Substance: PROMETHAZINE HYDROCHLORIDE
     Route: 065
  2. PEGASYS [Suspect]
     Active Substance: PEGINTERFERON ALFA-2A
     Indication: HEPATITIS C
     Dosage: FORM REPORTED AS PREFILLED SYRINGE
     Route: 065
  3. GABAPENTIN. [Concomitant]
     Active Substance: GABAPENTIN
     Route: 065
  4. VISTARIL [Concomitant]
     Active Substance: HYDROXYZINE PAMOATE
     Route: 065
  5. ATIVAN [Concomitant]
     Active Substance: LORAZEPAM
     Route: 065
  6. COPEGUS [Suspect]
     Active Substance: RIBAVIRIN
     Indication: HEPATITIS C
     Route: 065
  7. FELODIPINE. [Concomitant]
     Active Substance: FELODIPINE
     Route: 065

REACTIONS (4)
  - Hypoaesthesia [Unknown]
  - Chest pain [Unknown]
  - Vision blurred [Unknown]
  - Insomnia [Unknown]

NARRATIVE: CASE EVENT DATE: 20100114
